FAERS Safety Report 7805244-4 (Version None)
Quarter: 2011Q4

REPORT INFORMATION
  Report Type: 
  Country: None (occurrence: None)
  Receive Date: 20111010
  Receipt Date: 20110927
  Transmission Date: 20120403
  Serious: No
  Sender: FDA-Public Use
  Company Number: US-ELI_LILLY_AND_COMPANY-US201109000623

PATIENT
  Sex: Female

DRUGS (6)
  1. CYMBALTA [Suspect]
     Dosage: 30 MG, BID
     Dates: start: 20110802
  2. HUMALOG [Concomitant]
  3. LIPITOR [Concomitant]
  4. TRIAMTERENE [Concomitant]
  5. ALTACE [Concomitant]
  6. CYMBALTA [Suspect]
     Indication: DEPRESSION
     Dosage: 60 MG, QD
     Dates: start: 20050101, end: 20110727

REACTIONS (1)
  - DRUG INEFFECTIVE [None]
